FAERS Safety Report 9308918 (Version 1)
Quarter: 2013Q2

REPORT INFORMATION
  Report Type: Spontaneous
  Country: US (occurrence: US)
  Receive Date: 20130524
  Receipt Date: 20130524
  Transmission Date: 20140414
  Serious: Yes (Other)
  Sender: FDA-Public Use
  Company Number: US-BAXTER-2013BAX018612

PATIENT
  Sex: Male
  Weight: 88.64 kg

DRUGS (5)
  1. GAMMAGARD LIQUID [Suspect]
     Indication: IMMUNODEFICIENCY COMMON VARIABLE
     Route: 042
  2. 0.9% SODIUM CHLORIDE INJECTION [Suspect]
     Indication: DEHYDRATION
     Route: 042
  3. 0.9% SODIUM CHLORIDE INJECTION [Suspect]
     Indication: PREMEDICATION
  4. MEGACE [Concomitant]
     Indication: PRODUCT USED FOR UNKNOWN INDICATION
  5. HYDROCORTISONE [Concomitant]
     Indication: ADRENAL INSUFFICIENCY

REACTIONS (6)
  - Back pain [Recovered/Resolved]
  - Pain in extremity [Recovered/Resolved]
  - Headache [Recovered/Resolved]
  - Neck pain [Recovered/Resolved]
  - Feeling abnormal [Recovered/Resolved]
  - Meningitis aseptic [Recovered/Resolved]
